FAERS Safety Report 25817446 (Version 3)
Quarter: 2025Q4

REPORT INFORMATION
  Report Type: Spontaneous
  Country: US (occurrence: US)
  Receive Date: 20250918
  Receipt Date: 20251007
  Transmission Date: 20260117
  Serious: Yes (Other)
  Sender: BRISTOL-MYERS SQUIBB COMPANY
  Company Number: US-BRISTOL-MYERS SQUIBB COMPANY-2025-127953

PATIENT
  Age: 59 Year
  Sex: Male

DRUGS (53)
  1. POMALYST [Suspect]
     Active Substance: POMALIDOMIDE
     Indication: Plasma cell myeloma refractory
     Dates: start: 202507
  2. POMALYST [Suspect]
     Active Substance: POMALIDOMIDE
     Indication: Plasma cell myeloma
  3. POMALYST [Suspect]
     Active Substance: POMALIDOMIDE
     Dates: start: 20250912, end: 20250912
  4. POMALYST [Suspect]
     Active Substance: POMALIDOMIDE
     Dosage: TAKE ON AN EMPTY STOMACH, AT LEAST 2 HOURS BEFORE OR 2 HOURS AFTER MEALS
     Dates: start: 20250619, end: 20250912
  5. PROVENTIL HFA [Concomitant]
     Active Substance: ALBUTEROL SULFATE
     Indication: Wheezing
     Dosage: 90 MCG/ACTUATION, INHALE 2PUFFS EVERY 6 HOURS AS NEEDED;  INHALE 2PUFFS EVERY 4 HOURS AS NEEDED. QUANTITY: 18G
  6. PROVENTIL HFA [Concomitant]
     Active Substance: ALBUTEROL SULFATE
     Indication: Dyspnoea
  7. PROVENTIL HFA [Concomitant]
     Active Substance: ALBUTEROL SULFATE
     Indication: Asthma
  8. PROVENTIL HFA [Concomitant]
     Active Substance: ALBUTEROL SULFATE
     Indication: Plasma cell myeloma
  9. VENTOLIN HFA [Concomitant]
     Active Substance: ALBUTEROL SULFATE
     Indication: Wheezing
     Dosage: 90 MCG/ACTUATION, INHALE 2PUFFS EVERY 6 HOURS AS NEEDED;  INHALE 2PUFFS EVERY 4 HOURS AS NEEDED. QUANTITY: 18G
  10. VENTOLIN HFA [Concomitant]
     Active Substance: ALBUTEROL SULFATE
     Indication: Dyspnoea
  11. VENTOLIN HFA [Concomitant]
     Active Substance: ALBUTEROL SULFATE
     Indication: Asthma
  12. VENTOLIN HFA [Concomitant]
     Active Substance: ALBUTEROL SULFATE
     Indication: Plasma cell myeloma
  13. UROXATRAL [Concomitant]
     Active Substance: ALFUZOSIN HYDROCHLORIDE
     Indication: Product used for unknown indication
     Dosage: EXTENDED RELEASE 24 HR. IN THE MORNING.
     Dates: start: 20241028
  14. LAC-HYDRIN [Concomitant]
     Active Substance: AMMONIUM LACTATE
     Indication: Product used for unknown indication
     Dosage: LOTION
  15. ELIQUIS [Concomitant]
     Active Substance: APIXABAN
     Indication: Plasma cell myeloma refractory
     Dosage: TAKE 1 TABLET (2.5 MG TOTAL) BY MOUTH IN THE MORNING AND 1 TABLET (2.5 MG TOTAL) BEFORE BEDTIME. QUANTITY :60
  16. ELIQUIS [Concomitant]
     Active Substance: APIXABAN
     Indication: Thrombosis prophylaxis
  17. ABILIFY [Concomitant]
     Active Substance: ARIPIPRAZOLE
     Indication: Product used for unknown indication
     Dosage: TAKE 0.5 TABLETS (2.5 MG TOTAL) BY MOUTH
  18. BACLOFEN [Concomitant]
     Active Substance: BACLOFEN
     Indication: Neuropathy peripheral
     Dosage: TAKE 20MG BY MOUTH IN THE MORNING AND AT BEDTIME.
  19. VITAMIN D3 [Concomitant]
     Active Substance: CHOLECALCIFEROL
     Indication: Vitamin D deficiency
     Dosage: TAKE 2 TABLETS (800 UNITS TOTAL) BY MOUTH IN THE MORNING. QUANTITY:100
  20. KLONOPIN [Concomitant]
     Active Substance: CLONAZEPAM
     Indication: Muscle spasms
     Dosage: NIGHTLY
  21. DECADRON [Concomitant]
     Active Substance: DEXAMETHASONE
     Indication: Plasma cell myeloma
     Dosage: TAKE 20MG (5 TABLETS) BY MOUTH ONCE ON DAYS 2,9,16,23 CYCLES 1 AND 2. QUANTITY: 80
  22. LOMOTIL [Concomitant]
     Active Substance: ATROPINE SULFATE\DIPHENOXYLATE HYDROCHLORIDE
     Indication: Diarrhoea
     Dosage: 2.5-0.025 MG. TAKE 1 TABLET BY MOUTH AS NEEDED IN THE MORNING AND 1 TABLET AS NEEDED IN THE NOON AND 1 TABLET AS NEEDED IN THE EVENING AND 1 TABLET AS NEEDED BEFORE BEDTIME
  23. VIBERZI [Concomitant]
     Active Substance: ELUXADOLINE
     Indication: Diarrhoea
     Dosage: TAKE 75MG BY MOUTH IN THE MORNING AND 75 MG BEFORE BEDTIME
  24. VIBERZI [Concomitant]
     Active Substance: ELUXADOLINE
     Indication: Irritable bowel syndrome
  25. ARNUITY ELLIPTA [Concomitant]
     Active Substance: FLUTICASONE FUROATE
     Indication: Asthma
     Dosage: 200 MCG/ACTUATION, INHALE 1 PUFF IN THE MORNING. THEN RINSE MOUTH AFTER THE DOSING. QUANTITY: 30
  26. XODOL [Concomitant]
     Active Substance: ACETAMINOPHEN\HYDROCODONE BITARTRATE
     Indication: Pain
     Dosage: 10-300 MG. TAKE 1 TABLET BY MOUTH EVERY 6 HOURS AS NEEDED
  27. ATARAX [Concomitant]
     Active Substance: HYDROXYZINE HYDROCHLORIDE
     Indication: Product used for unknown indication
     Dosage: 1 TABLET (10MG TOTAL) . 2 TABLETS AT BEDTIME
  28. LEVOCARNITINE [Concomitant]
     Active Substance: LEVOCARNITINE
     Indication: Nephropathy
  29. EMLA [Concomitant]
     Active Substance: LIDOCAINE\PRILOCAINE
     Indication: Plasma cell myeloma in remission
     Dosage: 2.5-2.5%. APPLY SMALL MOUND TO PORT SITE 1 HOUR PRIOR TO ACCESSING 30DAY SUPPLY. QUANTITY: 30 GRAM
  30. IMODIUM A-D [Concomitant]
     Active Substance: LOPERAMIDE HYDROCHLORIDE
     Indication: Diarrhoea
     Dosage: TAKE 1 TABLET (2 MG TOTAL) BY MOUTH  IN THE MORNING AND 1 TABLET (2 MG TOTAL) IN THE NOON  AND 1 TABLET  (2 MG TOTAL) BEFORE BEDTIME
  31. MEDROL [Concomitant]
     Active Substance: METHYLPREDNISOLONE
     Indication: Rash
     Dosage: TAKE AS DIRECTED ON PACKAGE. QUANTITY: 21
  32. SINGULAIR [Concomitant]
     Active Substance: MONTELUKAST SODIUM
     Indication: Asthma
     Dosage: NIGHTLY. QUANTITY:30
  33. SINGULAIR [Concomitant]
     Active Substance: MONTELUKAST SODIUM
     Indication: Dyspnoea
  34. ZOFRAN [Concomitant]
     Active Substance: ONDANSETRON HYDROCHLORIDE
     Indication: Nausea
     Dosage: QUANTITY:60
  35. ZOFRAN [Concomitant]
     Active Substance: ONDANSETRON HYDROCHLORIDE
     Indication: Vomiting
  36. ZOFRAN [Concomitant]
     Active Substance: ONDANSETRON HYDROCHLORIDE
     Indication: Plasma cell myeloma
  37. PROTONIX [Concomitant]
     Active Substance: PANTOPRAZOLE SODIUM
     Indication: Gastrooesophageal reflux disease
     Dosage: EC TABLET. TAKE 1 TABLET (40MG TOTAL) BY MOUTH IN THE MORNING AND 1 TABLET (40MG TOTAL) BEFORE BEDTIME
  38. LYRICA [Concomitant]
     Active Substance: PREGABALIN
     Indication: Product used for unknown indication
     Dosage: NIGHTLY. QUANTITY:60
  39. COMPAZINE [Concomitant]
     Active Substance: PROCHLORPERAZINE MALEATE
     Indication: Nausea
     Dosage: AS NEEDED. QUANTITY: 60
  40. COMPAZINE [Concomitant]
     Active Substance: PROCHLORPERAZINE MALEATE
     Indication: Vomiting
  41. COMPAZINE [Concomitant]
     Active Substance: PROCHLORPERAZINE MALEATE
     Indication: Plasma cell myeloma
  42. INDERAL [Concomitant]
     Active Substance: PROPRANOLOL HYDROCHLORIDE
     Indication: Hypertension
     Dosage: IN THE MORNING
  43. ZOLOFT [Concomitant]
     Active Substance: SERTRALINE HYDROCHLORIDE
     Indication: Depression
     Dosage: TAKE 1.5 TABLETS (150MG TOTAL) BY MOUTH IN THE MORNING
  44. COENZYME Q10 [Concomitant]
     Active Substance: DIETARY SUPPLEMENT\UBIDECARENONE
     Indication: Supplementation therapy
     Dosage: IN THE MORNING. INDICATION: SUPPLEMENTS
  45. VALTREX [Concomitant]
     Active Substance: VALACYCLOVIR HYDROCHLORIDE
     Indication: Plasma cell myeloma
     Dosage: TAKE 1 TABLET (500 MG TOTAL) IN THE MORNING AND 1 TABLET (500 MG TOTAL) BEFORE BEDTIME. CONTINUE FOR 3 MONTHS AFTER THE LAST DARZALEX (DARATUMUMAB) INFUSION. QUANTITY:60
  46. VALTREX [Concomitant]
     Active Substance: VALACYCLOVIR HYDROCHLORIDE
     Indication: Antiviral treatment
  47. VITAMIN B COMPLEX [Concomitant]
     Active Substance: CYANOCOBALAMIN\DEXPANTHENOL\NIACINAMIDE\PYRIDOXINE HYDROCHLORIDE\RIBOFLAVIN 5^-PHOSPHATE SODIUM\THIA
     Indication: Supplementation therapy
     Dosage: TAKE 1 TABLET BY MOUTH IN THE MORNING. INDICATIONS: SUPPLEMENT 500 MG
  48. ASPIRIN [Concomitant]
     Active Substance: ASPIRIN
     Indication: Cardiac disorder
  49. B-50 COMPLEX [VITAMIN B COMPLEX] [Concomitant]
     Indication: Supplementation therapy
  50. LEVAQUIN [Concomitant]
     Active Substance: LEVOFLOXACIN
     Indication: Plasma cell myeloma refractory
     Dosage: QUANTITY :30
  51. LEVAQUIN [Concomitant]
     Active Substance: LEVOFLOXACIN
     Indication: Prophylaxis
  52. DARZALEX [Concomitant]
     Active Substance: DARATUMUMAB
     Indication: Product used for unknown indication
  53. XGEVA [Concomitant]
     Active Substance: DENOSUMAB
     Indication: Product used for unknown indication

REACTIONS (5)
  - Swelling face [Recovered/Resolved]
  - Neutropenia [Unknown]
  - Rash pruritic [Recovered/Resolved]
  - Dizziness postural [Unknown]
  - Fall [Unknown]

NARRATIVE: CASE EVENT DATE: 20250713
